FAERS Safety Report 5373954-7 (Version None)
Quarter: 2007Q2

REPORT INFORMATION
  Report Type: 
  Country: None (occurrence: None)
  Receive Date: 20070627
  Receipt Date: 20070612
  Transmission Date: 20071010
  Serious: Yes (Life-Threatening, Hospitalization)
  Sender: FDA-Public Use
  Company Number: SPV1-2007-03339

PATIENT
  Age: 9 Year
  Sex: Male
  Weight: 22.7 kg

DRUGS (1)
  1. ADDERALL XR 10 [Suspect]

REACTIONS (1)
  - CARDIAC ARREST [None]
